FAERS Safety Report 4577379-3 (Version None)
Quarter: 2005Q1

REPORT INFORMATION
  Report Type: 
  Country: None (occurrence: None)
  Receive Date: 20050210
  Receipt Date: 20050207
  Transmission Date: 20050727
  Serious: Yes (Death, Life-Threatening)
  Sender: FDA-Public Use
  Company Number: D01200500873

PATIENT

DRUGS (7)
  1. FONDAPARINUX SODIUM [Suspect]
     Indication: ANGINA UNSTABLE
     Dosage: 2.5MG PER DAY
     Route: 058
  2. ASPIRIN [Concomitant]
  3. ENOXAPARIN SODIUM [Concomitant]
     Dosage: 1MGK TWICE PER DAY
     Route: 058
  4. TIROFIBAN HYDROCHLORIDE [Concomitant]
  5. AMIODARONE [Concomitant]
  6. NITRATES [Concomitant]
  7. LEVODOPA [Concomitant]

REACTIONS (3)
  - CARDIAC ARREST [None]
  - INTRACRANIAL HAEMATOMA [None]
  - RESPIRATORY ARREST [None]
